FAERS Safety Report 11838117 (Version 2)
Quarter: 2015Q4

REPORT INFORMATION
  Report Type: Spontaneous
  Country: US (occurrence: US)
  Receive Date: 20151215
  Receipt Date: 20151223
  Transmission Date: 20160305
  Serious: No
  Sender: FDA-Public Use
  Company Number: US-GLAXOSMITHKLINE-US2015176236

PATIENT
  Age: 44 Year
  Sex: Female

DRUGS (2)
  1. FLONASE [Suspect]
     Active Substance: FLUTICASONE PROPIONATE
     Indication: UPPER RESPIRATORY TRACT INFECTION
     Dosage: UNK, TWICE
     Dates: start: 20151121, end: 20151123
  2. FLONASE [Suspect]
     Active Substance: FLUTICASONE PROPIONATE
     Indication: NASOPHARYNGITIS

REACTIONS (7)
  - Erythema [Unknown]
  - Nasal inflammation [Unknown]
  - Hypersensitivity [Not Recovered/Not Resolved]
  - Nasal crusting [Not Recovered/Not Resolved]
  - Product use issue [Unknown]
  - Nasal disorder [Not Recovered/Not Resolved]
  - Nasal discomfort [Not Recovered/Not Resolved]

NARRATIVE: CASE EVENT DATE: 20151121
